APPROVED DRUG PRODUCT: MOTRIN
Active Ingredient: IBUPROFEN
Strength: 100MG/5ML **Federal Register determination that product was not discontinued or withdrawn for safety or effectiveness reasons**
Dosage Form/Route: SUSPENSION;ORAL
Application: N019842 | Product #001
Applicant: MCNEIL CONSUMER HEALTHCARE DIV MCNEIL PPC INC
Approved: Sep 19, 1989 | RLD: Yes | RS: No | Type: DISCN